FAERS Safety Report 8508274-2 (Version None)
Quarter: 2012Q2

REPORT INFORMATION
  Report Type: 
  Country: None (occurrence: None)
  Receive Date: 20120405
  Receipt Date: 20090210
  Transmission Date: 20120825
  Serious: Yes (Other)
  Sender: FDA-Public Use
  Company Number: PHEH2009US01122

PATIENT
  Sex: Female

DRUGS (6)
  1. RECLAST [Suspect]
     Dosage: INFUSION
     Dates: start: 20081027
  2. PREDNISONE TAB [Concomitant]
  3. ASPIRIN [Concomitant]
  4. LASIX [Concomitant]
  5. SYNTHROID [Concomitant]
  6. TENORMIN [Concomitant]

REACTIONS (5)
  - PAIN IN EXTREMITY [None]
  - BONE PAIN [None]
  - OEDEMA PERIPHERAL [None]
  - FEELING ABNORMAL [None]
  - MYALGIA [None]
